FAERS Safety Report 4362153-3 (Version None)
Quarter: 2004Q2

REPORT INFORMATION
  Report Type: 
  Country: None (occurrence: None)
  Receive Date: 20040517
  Receipt Date: 20040503
  Transmission Date: 20050107
  Serious: Yes (Hospitalization)
  Sender: FDA-Public Use
  Company Number: TPA2003A01730

PATIENT
  Age: 71 Year
  Sex: Male

DRUGS (6)
  1. ACTOS [Suspect]
     Indication: DIABETES MELLITUS NON-INSULIN-DEPENDENT
     Dosage: 15 MG, 1 IN 1 D, PER ORAL
     Route: 048
     Dates: start: 20010101
  2. LANTUS INSULIN (INSULIN GLARGINE) [Concomitant]
  3. AMARYL [Concomitant]
  4. HYDROCHLOROTHIAZIDE [Concomitant]
  5. DIOVAN [Concomitant]
  6. ZOCOR [Concomitant]

REACTIONS (4)
  - ANEURYSM [None]
  - EYE HAEMORRHAGE [None]
  - MACULAR OEDEMA [None]
  - OEDEMA PERIPHERAL [None]
